FAERS Safety Report 19711740 (Version 4)
Quarter: 2022Q1

REPORT INFORMATION
  Report Type: Spontaneous
  Country: IE (occurrence: IE)
  Receive Date: 20210817
  Receipt Date: 20220321
  Transmission Date: 20220423
  Serious: Yes (Other)
  Sender: FDA-Public Use
  Company Number: IE-BAXTER-2021BAX003656

PATIENT
  Age: 5 Year
  Sex: Male

DRUGS (16)
  1. METHOTREXATE [Suspect]
     Active Substance: METHOTREXATE
     Indication: Acute lymphocytic leukaemia
     Dosage: UNK (UKALL 2011 PROTOCOL REGIMEN A)
     Route: 065
     Dates: start: 2013, end: 2016
  2. METHOTREXATE [Suspect]
     Active Substance: METHOTREXATE
     Indication: B precursor type acute leukaemia
  3. DEXAMETHASONE [Suspect]
     Active Substance: DEXAMETHASONE
     Indication: Acute lymphocytic leukaemia
     Dosage: UNK (UKALL 2011 PROTOCOL REGIMEN A)
     Route: 065
     Dates: start: 2013, end: 2016
  4. DEXAMETHASONE [Suspect]
     Active Substance: DEXAMETHASONE
     Indication: B precursor type acute leukaemia
  5. MERCAPTOPURINE [Suspect]
     Active Substance: MERCAPTOPURINE
     Indication: Acute lymphocytic leukaemia
     Dosage: UNK (UKALL 2011 PROTOCOL REGIMEN A)
     Route: 065
     Dates: start: 2013, end: 2016
  6. MERCAPTOPURINE [Suspect]
     Active Substance: MERCAPTOPURINE
     Indication: B precursor type acute leukaemia
  7. DOXIL [Suspect]
     Active Substance: DOXORUBICIN HYDROCHLORIDE
     Indication: Acute lymphocytic leukaemia
     Dosage: UNK (UKALL 2011 PROTOCOL REGIMEN A)
     Route: 065
     Dates: start: 2013, end: 2016
  8. CYTARABINE [Suspect]
     Active Substance: CYTARABINE
     Indication: Acute lymphocytic leukaemia
     Dosage: UNK (UKALL 2011 PROTOCOL REGIMEN A)
     Route: 065
     Dates: start: 2013, end: 2016
  9. CYTARABINE [Suspect]
     Active Substance: CYTARABINE
     Indication: B precursor type acute leukaemia
  10. VINCRISTINE [Suspect]
     Active Substance: VINCRISTINE
     Indication: Acute lymphocytic leukaemia
     Dosage: UNK (UKALL 2011 PROTOCOL REGIMEN A)
     Route: 065
     Dates: start: 2013, end: 2016
  11. VINCRISTINE [Suspect]
     Active Substance: VINCRISTINE
     Indication: B precursor type acute leukaemia
  12. CYCLOPHOSPHAMIDE [Suspect]
     Active Substance: CYCLOPHOSPHAMIDE
     Indication: Acute lymphocytic leukaemia
     Dosage: UNK (UKALL 2011 PROTOCOL REGIMEN A)
     Route: 065
     Dates: start: 2013, end: 2016
  13. CYCLOPHOSPHAMIDE [Suspect]
     Active Substance: CYCLOPHOSPHAMIDE
     Indication: B precursor type acute leukaemia
  14. PEGASPARGASE [Suspect]
     Active Substance: PEGASPARGASE
     Indication: Acute lymphocytic leukaemia
     Dosage: UNK (UKALL 2011 PROTOCOL REGIMEN A)
     Route: 065
     Dates: start: 2013, end: 2016
  15. PEGASPARGASE [Suspect]
     Active Substance: PEGASPARGASE
     Indication: B precursor type acute leukaemia
  16. DOXORUBICIN [Suspect]
     Active Substance: DOXORUBICIN
     Indication: B precursor type acute leukaemia
     Dosage: UNK, UKALL 2011 PROTOCOL REGIMEN A
     Route: 065
     Dates: start: 2013, end: 2016

REACTIONS (4)
  - Multiple lentigines syndrome [Unknown]
  - Lentigo [Unknown]
  - Acral lentiginous melanoma [Unknown]
  - Rash [Unknown]

NARRATIVE: CASE EVENT DATE: 20160101
